FAERS Safety Report 6552038-6 (Version None)
Quarter: 2010Q1

REPORT INFORMATION
  Report Type: 
  Country: None (occurrence: None)
  Receive Date: 20100126
  Receipt Date: 20100122
  Transmission Date: 20100710
  Serious: Yes (Other)
  Sender: FDA-Public Use
  Company Number: JP-ROCHE-677732

PATIENT
  Sex: Male
  Weight: 18 kg

DRUGS (2)
  1. TAMIFLU [Suspect]
     Indication: INFLUENZA
     Route: 048
     Dates: start: 20091216, end: 20091216
  2. CALONAL [Concomitant]
     Dosage: DOSAGE ADJUSTED: 9ML
     Route: 048
     Dates: start: 20091216

REACTIONS (1)
  - ABNORMAL BEHAVIOUR [None]
